FAERS Safety Report 25396435 (Version 2)
Quarter: 2025Q3

REPORT INFORMATION
  Report Type: Report from Study
  Country: CH (occurrence: CH)
  Receive Date: 20250604
  Receipt Date: 20250714
  Transmission Date: 20251020
  Serious: Yes (Hospitalization)
  Sender: MERCK SHARP & DOHME LLC
  Company Number: CH-AstrazenecaRSG-7301-D926QC00001(Prod)000015

PATIENT
  Age: 48 Year
  Sex: Female

DRUGS (10)
  1. PEMBROLIZUMAB [Suspect]
     Active Substance: PEMBROLIZUMAB
     Indication: Triple negative breast cancer
     Dosage: 200 MG, ONCE EVERY 3 WK
     Route: 042
     Dates: start: 20240524, end: 20240705
  2. MOVICOL [MACROGOL 3350;POTASSIUM CHLORIDE;SODIUM BICARBONATE;SODIUM... [Concomitant]
     Indication: Laxative supportive care
     Dosage: 1.00 OTHER SACHET BID
     Route: 048
     Dates: start: 20240709
  3. EUTHYROX [Concomitant]
     Active Substance: LEVOTHYROXINE SODIUM
     Indication: Hypothyroidism
     Dosage: 125 MICROGRAM, QD
     Route: 048
     Dates: start: 20240830
  4. CARBOPLATIN [Suspect]
     Active Substance: CARBOPLATIN
     Indication: Triple negative breast cancer
     Dosage: 5 AUC Q3W
     Route: 042
     Dates: start: 20240524, end: 20240705
  5. CARBOPLATIN [Suspect]
     Active Substance: CARBOPLATIN
     Indication: Triple negative breast cancer
     Dosage: 1.5 AUC Q3W
     Route: 042
     Dates: start: 20240726, end: 20240819
  6. PACLITAXEL [Suspect]
     Active Substance: PACLITAXEL
     Indication: Triple negative breast cancer
     Dosage: 80 MILLIGRAM/SQ. METER, Q3W
     Route: 042
     Dates: start: 20240524, end: 20240819
  7. ASTEMIZOLE [Concomitant]
     Active Substance: ASTEMIZOLE
     Indication: African trypanosomiasis
     Route: 048
     Dates: start: 20240709
  8. CYCLOPHOSPHAMIDE [Suspect]
     Active Substance: CYCLOPHOSPHAMIDE
     Indication: Triple negative breast cancer
     Dosage: 600.0 MILLIGRAM/SQ. METER, Q3W
     Route: 042
     Dates: start: 20240830, end: 20240830
  9. KCL [Concomitant]
     Active Substance: POTASSIUM CHLORIDE
     Indication: Dehydration
     Dosage: 391.00 MILLIGRAM, BID
     Route: 048
     Dates: start: 20240709
  10. EPIRUBICIN [Suspect]
     Active Substance: EPIRUBICIN
     Indication: Triple negative breast cancer
     Dosage: 90 MILLIGRAM/SQ. METER, Q3W
     Route: 042
     Dates: start: 20240830, end: 20240830

REACTIONS (1)
  - Post procedural infection [Recovered/Resolved]

NARRATIVE: CASE EVENT DATE: 20250224
